FAERS Safety Report 10709485 (Version 1)
Quarter: 2015Q1

REPORT INFORMATION
  Report Type: Spontaneous
  Country: DE (occurrence: DE)
  Receive Date: 20150114
  Receipt Date: 20150114
  Transmission Date: 20150721
  Serious: Yes (Death, Other)
  Sender: FDA-Public Use
  Company Number: DE-CIPLA LTD.-2015DE00410

PATIENT

DRUGS (6)
  1. IRINOTECAN [Suspect]
     Active Substance: IRINOTECAN
  2. GEMCITABINE [Suspect]
     Active Substance: GEMCITABINE\GEMCITABINE HYDROCHLORIDE
     Indication: PANCREATIC CARCINOMA METASTATIC
     Dosage: 1,000 MG/M2
  3. FLUOROURACIL. [Suspect]
     Active Substance: FLUOROURACIL
     Dosage: UNK
     Dates: start: 201307
  4. OXALIPLATIN. [Suspect]
     Active Substance: OXALIPLATIN
  5. PACLITAXEL. [Suspect]
     Active Substance: PACLITAXEL
     Indication: PANCREATIC CARCINOMA METASTATIC
     Dosage: 125 MG/M2
  6. FOLINIC ACID [Suspect]
     Active Substance: LEUCOVORIN
     Dosage: UNK
     Dates: start: 201303, end: 201305

REACTIONS (12)
  - Death [Fatal]
  - Metastases to peritoneum [Unknown]
  - Metastases to liver [Unknown]
  - Thrombocytopenia [Unknown]
  - Peripheral sensory neuropathy [Unknown]
  - Anaemia [Unknown]
  - Alopecia [Unknown]
  - Leukopenia [Unknown]
  - Nail disorder [Unknown]
  - Intestinal obstruction [Unknown]
  - Rash [Unknown]
  - Disease progression [Unknown]

NARRATIVE: CASE EVENT DATE: 201302
